FAERS Safety Report 5529895-5 (Version None)
Quarter: 2007Q4

REPORT INFORMATION
  Report Type: 
  Country: None (occurrence: None)
  Receive Date: 20071129
  Receipt Date: 20071102
  Transmission Date: 20080405
  Serious: No
  Sender: FDA-Public Use
  Company Number: US-BOEHRINGER INGELHEIM PHARMACEUTICALS, INC.-2007-BP-23138BP

PATIENT
  Sex: Male

DRUGS (6)
  1. FLOMAX [Suspect]
     Indication: BENIGN PROSTATIC HYPERPLASIA
     Route: 048
     Dates: start: 20070901
  2. FLOMAX [Suspect]
     Indication: PROSTATOMEGALY
  3. TEMAZEPAM [Concomitant]
  4. OXYBUTYNIN CHLORIDE [Concomitant]
  5. COSOPT [Concomitant]
     Route: 031
  6. TRATAN [Concomitant]

REACTIONS (2)
  - POLLAKIURIA [None]
  - RESIDUAL URINE [None]
